FAERS Safety Report 9387055 (Version 1)
Quarter: 2013Q3

REPORT INFORMATION
  Report Type: Spontaneous
  Country: BE (occurrence: BE)
  Receive Date: 20130708
  Receipt Date: 20130708
  Transmission Date: 20140515
  Serious: Yes (Other)
  Sender: FDA-Public Use
  Company Number: BE-JNJFOC-20130700662

PATIENT
  Age: 85 Year
  Sex: Female

DRUGS (6)
  1. XARELTO [Suspect]
     Indication: CEREBROVASCULAR ACCIDENT PROPHYLAXIS
     Route: 048
     Dates: start: 201302
  2. XARELTO [Suspect]
     Indication: ATRIAL FIBRILLATION
     Route: 048
     Dates: start: 201302
  3. LASIX [Concomitant]
     Route: 065
  4. EMCONCOR [Concomitant]
     Route: 065
  5. MEDROL [Concomitant]
     Route: 065
  6. CONTRAMAL [Concomitant]
     Route: 065

REACTIONS (1)
  - Deep vein thrombosis [Unknown]
